FAERS Safety Report 23952622 (Version 2)
Quarter: 2024Q2

REPORT INFORMATION
  Report Type: Spontaneous
  Country: JP (occurrence: JP)
  Receive Date: 20240607
  Receipt Date: 20240611
  Transmission Date: 20240715
  Serious: No
  Sender: FDA-Public Use
  Company Number: JP-BIOVITRUM-2024-JP-003246

PATIENT

DRUGS (4)
  1. PEGCETACOPLAN [Suspect]
     Active Substance: PEGCETACOPLAN
     Indication: Paroxysmal nocturnal haemoglobinuria
     Dosage: UNK
     Route: 058
  2. PEGCETACOPLAN [Suspect]
     Active Substance: PEGCETACOPLAN
     Dosage: TWICE A WEEK ON TUESDAY AND FRIDAY
     Route: 058
  3. PEGCETACOPLAN [Suspect]
     Active Substance: PEGCETACOPLAN
     Dosage: THREE TIMES A WEEK
     Route: 058
     Dates: start: 20240226
  4. PEGCETACOPLAN [Suspect]
     Active Substance: PEGCETACOPLAN
     Dosage: TWICE/WEEK
     Route: 058
     Dates: start: 20231121

REACTIONS (5)
  - Haemolysis [Unknown]
  - Anaemia [Not Recovered/Not Resolved]
  - Blood lactate dehydrogenase abnormal [Unknown]
  - Sluggishness [Not Recovered/Not Resolved]
  - Injection site pain [Unknown]

NARRATIVE: CASE EVENT DATE: 20240219
